FAERS Safety Report 8155446 (Version 4)
Quarter: 2012Q4

REPORT INFORMATION
  Report Type: 
  Country: US (occurrence: US)
  Receive Date: 20110926
  Receipt Date: 20120905
  Transmission Date: 20130627
  Serious: No
  Sender: FDA-Public Use
  Company Number: US-B.I. PHARMACEUTICALS,INC./RIDGEFIELD-2011-BP-22142BP

PATIENT
  Age: 91 None
  Sex: Female
  Weight: 52.62 kg

DRUGS (11)
  1. PRADAXA [Suspect]
     Indication: ATRIAL FLUTTER
     Dosage: 150 mg
     Route: 048
     Dates: start: 201106
  2. PRADAXA [Suspect]
     Indication: ATRIAL FIBRILLATION
     Dosage: 300 mg
     Route: 048
     Dates: start: 201109
  3. PRADAXA [Suspect]
     Dosage: 150 mg
     Route: 048
  4. ASA [Concomitant]
     Indication: ATRIAL FLUTTER
     Dosage: 81 mg
     Route: 048
  5. SYNTHROID [Concomitant]
     Indication: HYPOTHYROIDISM
     Dosage: 0.125 mg
     Route: 048
  6. CARTIA [Concomitant]
     Indication: HYPERTENSION
     Route: 048
  7. HIGH BLOOD PRESSURE MEDICATION [Concomitant]
     Indication: HYPERTENSION
     Route: 048
  8. WOMEN^S VITAMIN [Concomitant]
     Indication: ROUTINE HEALTH MAINTENANCE
     Route: 048
  9. CALCIUM CITRATE [Concomitant]
     Indication: ROUTINE HEALTH MAINTENANCE
     Route: 048
  10. UNKNOWN MEDICATION [Concomitant]
     Indication: THYROID DISORDER
  11. UNKNOWN MEDICATION [Concomitant]
     Indication: HYPERTENSION

REACTIONS (5)
  - Contusion [Recovered/Resolved]
  - Fatigue [Not Recovered/Not Resolved]
  - Constipation [Not Recovered/Not Resolved]
  - Contusion [Recovered/Resolved]
  - Alopecia [Not Recovered/Not Resolved]
